FAERS Safety Report 4464986-1 (Version None)
Quarter: 2004Q4

REPORT INFORMATION
  Report Type: 
  Country: None (occurrence: None)
  Receive Date: 20041004
  Receipt Date: 20040513
  Transmission Date: 20050328
  Serious: No
  Sender: FDA-Public Use
  Company Number: 370258

PATIENT
  Age: 57 Year
  Sex: Female
  Weight: 90 kg

DRUGS (11)
  1. COREG [Suspect]
     Indication: HYPERTENSION
     Dosage: 6.25MG TWICE PER DAY
     Route: 048
  2. LASIX [Concomitant]
  3. DARVOCET [Concomitant]
  4. IMDUR [Concomitant]
  5. PAVIL [Concomitant]
  6. CELEBREX [Concomitant]
  7. MINIPRESS [Concomitant]
  8. VITAMIN D [Concomitant]
  9. AMBIEN [Concomitant]
  10. NORVASC [Concomitant]
  11. FLEXERIL [Concomitant]

REACTIONS (2)
  - ARTHRALGIA [None]
  - OEDEMA PERIPHERAL [None]
